FAERS Safety Report 8630085 (Version 3)
Quarter: 2013Q1

REPORT INFORMATION
  Report Type: Spontaneous
  Country: US (occurrence: US)
  Receive Date: 20120622
  Receipt Date: 20130321
  Transmission Date: 20140127
  Serious: Yes (Hospitalization, Congenital Anomaly, Other)
  Sender: FDA-Public Use
  Company Number: US-PFIZER INC-2012147255

PATIENT
  Sex: Male
  Weight: 3.6 kg

DRUGS (19)
  1. ZOLOFT [Suspect]
     Indication: DEPRESSION
     Dosage: 100 MG, HALF-A-TABLET
     Route: 064
     Dates: start: 20030919, end: 20040525
  2. CELEXA [Concomitant]
     Indication: MOOD SWINGS
     Dosage: UNK
     Route: 064
  3. CELEXA [Concomitant]
     Indication: ANXIETY
  4. PRENATAL VITAMINS [Concomitant]
     Dosage: UNK
     Route: 064
  5. ZOFRAN [Concomitant]
     Dosage: UNK
     Route: 064
  6. BENADRYL [Concomitant]
     Indication: COUGH
     Dosage: UNK
     Route: 064
  7. AMOXIL [Concomitant]
     Indication: UPPER RESPIRATORY TRACT INFECTION
     Dosage: 250 MG, 3X/DAY
     Route: 064
  8. SONATA [Concomitant]
     Dosage: UNK
     Route: 064
  9. TRIVORA [Concomitant]
     Dosage: UNK
     Route: 064
  10. ALPRAZOLAM [Concomitant]
     Dosage: UNK
     Route: 064
  11. SKELAXIN [Concomitant]
     Dosage: UNK
     Route: 064
  12. VICODIN [Concomitant]
     Dosage: UNK
     Route: 064
  13. VISTARIL [Concomitant]
     Dosage: UNK
     Route: 064
  14. TYLENOL [Concomitant]
     Dosage: UNK
     Route: 064
  15. HYDROCODONE W/ACETAMINOPHEN [Concomitant]
     Dosage: UNK
     Route: 064
  16. ACETAMINOPHEN [Concomitant]
     Dosage: UNK
     Route: 064
  17. AMOXICILLIN [Concomitant]
     Dosage: UNK
     Route: 064
  18. ZITHROMAX [Concomitant]
     Dosage: UNK
     Route: 064
  19. HYDROXYZINE [Concomitant]
     Dosage: UNK
     Route: 064

REACTIONS (2)
  - Maternal exposure timing unspecified [Unknown]
  - Hypoplastic left heart syndrome [Unknown]
